FAERS Safety Report 6728247-X (Version None)
Quarter: 2010Q2

REPORT INFORMATION
  Report Type: 
  Country: None (occurrence: None)
  Receive Date: 20100517
  Receipt Date: 20100510
  Transmission Date: 20101027
  Serious: Yes (Hospitalization)
  Sender: FDA-Public Use
  Company Number: DE-BAYER-201016912GPV

PATIENT
  Age: 59 Year
  Sex: Male

DRUGS (5)
  1. AVELOX [Suspect]
     Indication: CHOLECYSTITIS ACUTE
     Dosage: TOTAL DAILY DOSE: 400 MG  UNIT DOSE: 400 MG
     Route: 042
     Dates: start: 20100208
  2. DIPYRONE TAB [Concomitant]
  3. CLEXANE [Concomitant]
  4. PANTOZOL [Concomitant]
  5. KALINOR-BRAUSE [Concomitant]

REACTIONS (1)
  - CHOLECYSTITIS ACUTE [None]
